FAERS Safety Report 15550279 (Version 2)
Quarter: 2018Q4

REPORT INFORMATION
  Report Type: Spontaneous
  Country: US (occurrence: US)
  Receive Date: 20181025
  Receipt Date: 20181115
  Transmission Date: 20190205
  Serious: No
  Sender: FDA-Public Use
  Company Number: US-GLAXOSMITHKLINE-US2018GSK188132

PATIENT
  Sex: Female

DRUGS (6)
  1. SUMATRIPTAN (SUMATRIPTAN SUCCINATE) TABLET [Suspect]
     Active Substance: SUMATRIPTAN
     Indication: PRODUCT USED FOR UNKNOWN INDICATION
     Dosage: 50 MG, UNK
  2. CALCIUM UNKNOWN [Concomitant]
  3. MAGNESIUM HYDROXIDE + SIMETHICONE ORAL SUSPENSION [Concomitant]
  4. SUMATRIPTAN (SUMATRIPTAN SUCCINATE) SOLUTION FOR INJECTION IN PRE-FILL [Suspect]
     Active Substance: SUMATRIPTAN
     Indication: PRODUCT USED FOR UNKNOWN INDICATION
     Dosage: 4 MG, UNK
  5. CELEXA [Concomitant]
     Active Substance: CITALOPRAM HYDROBROMIDE
  6. ATIVAN [Concomitant]
     Active Substance: LORAZEPAM

REACTIONS (8)
  - Chest discomfort [Unknown]
  - Device malfunction [Unknown]
  - Migraine [Unknown]
  - Intentional underdose [Unknown]
  - Product dose omission [Unknown]
  - Product quality issue [Unknown]
  - Nausea [Unknown]
  - Pharyngeal oedema [Unknown]
